FAERS Safety Report 6168802-1 (Version None)
Quarter: 2009Q2

REPORT INFORMATION
  Report Type: 
  Country: None (occurrence: None)
  Receive Date: 20090424
  Receipt Date: 20090424
  Transmission Date: 20091009
  Serious: No
  Sender: FDA-Public Use
  Company Number: None

PATIENT
  Age: 63 Year
  Sex: Male
  Weight: 85.28 kg

DRUGS (1)
  1. CHOLESTYRAMINE [Suspect]
     Indication: HYPERLIPIDAEMIA
     Dosage: 4 GM BID PO
     Route: 048
     Dates: start: 20090103, end: 20090104

REACTIONS (1)
  - DROOLING [None]
